FAERS Safety Report 6128559-7 (Version None)
Quarter: 2009Q1

REPORT INFORMATION
  Report Type: 
  Country: None (occurrence: None)
  Receive Date: 20090319
  Receipt Date: 20090316
  Transmission Date: 20090719
  Serious: Yes (Hospitalization)
  Sender: FDA-Public Use
  Company Number: GXKR2009DE03253

PATIENT
  Age: 64 Year
  Sex: Male
  Weight: 80 kg

DRUGS (1)
  1. SIMVASTATIN [Suspect]
     Indication: HYPERCHOLESTEROLAEMIA
     Dosage: 10 MG/DAILY, ORAL
     Route: 048
     Dates: start: 20080501, end: 20081201

REACTIONS (5)
  - DIPLOPIA [None]
  - DYSPHAGIA [None]
  - ERECTILE DYSFUNCTION [None]
  - EYELID PTOSIS [None]
  - SPEECH DISORDER [None]
